FAERS Safety Report 11907551 (Version 1)
Quarter: 2016Q1

REPORT INFORMATION
  Report Type: Spontaneous
  Country: US (occurrence: US)
  Receive Date: 20160111
  Receipt Date: 20160111
  Transmission Date: 20160526
  Serious: No
  Sender: FDA-Public Use
  Company Number: US-ENDO PHARMACEUTICALS INC.-2015-004063

PATIENT
  Sex: Female
  Weight: 37.68 kg

DRUGS (14)
  1. BACLOFEN TABLETS 10MG [Concomitant]
     Active Substance: BACLOFEN
     Indication: MUSCLE SPASMS
  2. PERCOCET [Suspect]
     Active Substance: ACETAMINOPHEN\OXYCODONE HYDROCHLORIDE
     Indication: BACK PAIN
     Route: 048
     Dates: start: 2010
  3. PERCOCET [Suspect]
     Active Substance: ACETAMINOPHEN\OXYCODONE HYDROCHLORIDE
     Indication: NECK PAIN
  4. OXYCODONE AND ACETAMINOPHEN [Suspect]
     Active Substance: ACETAMINOPHEN\OXYCODONE HYDROCHLORIDE
     Indication: BACK PAIN
     Route: 048
     Dates: start: 2010
  5. XALATAN [Concomitant]
     Active Substance: LATANOPROST
     Indication: GLAUCOMA
  6. PANCRELIPASE. [Concomitant]
     Active Substance: PANCRELIPASE
     Indication: DYSPEPSIA
  7. ADVAIR HFA [Concomitant]
     Active Substance: FLUTICASONE PROPIONATE\SALMETEROL XINAFOATE
     Indication: ASTHMA
  8. BACLOFEN TABLETS 10MG [Concomitant]
     Active Substance: BACLOFEN
     Indication: MUSCLE TIGHTNESS
  9. PREDNISONE TABLETS 2.5MG [Concomitant]
     Active Substance: PREDNISONE
     Indication: PRODUCT USED FOR UNKNOWN INDICATION
  10. ALREX [Concomitant]
     Active Substance: LOTEPREDNOL ETABONATE
     Indication: OCULAR HYPERAEMIA
  11. ALREX [Concomitant]
     Active Substance: LOTEPREDNOL ETABONATE
     Indication: EYE INFLAMMATION
  12. OXYCODONE AND ACETAMINOPHEN [Suspect]
     Active Substance: ACETAMINOPHEN\OXYCODONE HYDROCHLORIDE
     Indication: NECK PAIN
  13. OXYCODONE AND ACETAMINOPHEN [Suspect]
     Active Substance: ACETAMINOPHEN\OXYCODONE HYDROCHLORIDE
     Indication: ENDOMETRIOSIS
  14. PERCOCET [Suspect]
     Active Substance: ACETAMINOPHEN\OXYCODONE HYDROCHLORIDE
     Indication: ENDOMETRIOSIS

REACTIONS (12)
  - Fatigue [Not Recovered/Not Resolved]
  - Petechiae [Not Recovered/Not Resolved]
  - Heart rate increased [Unknown]
  - Hypertension [Unknown]
  - Syncope [Recovered/Resolved]
  - Pyrexia [Recovered/Resolved]
  - Skin lesion [Recovered/Resolved]
  - Autonomic neuropathy [Not Recovered/Not Resolved]
  - Heart rate decreased [Unknown]
  - Throat tightness [Recovered/Resolved]
  - Night sweats [Recovered/Resolved]
  - Hypotension [Unknown]

NARRATIVE: CASE EVENT DATE: 2013
